FAERS Safety Report 7212229-8 (Version None)
Quarter: 2010Q4

REPORT INFORMATION
  Report Type: 
  Country: None (occurrence: None)
  Receive Date: 20101227
  Receipt Date: 20101209
  Transmission Date: 20110411
  Serious: Yes (Other)
  Sender: FDA-Public Use
  Company Number: AUR-APL-2010-03177

PATIENT
  Age: 60 Year
  Sex: Female

DRUGS (9)
  1. ATENOLOL [Suspect]
     Dosage: 50MG - ORAL
     Route: 048
     Dates: start: 20101027
  2. BENICAR [Suspect]
     Indication: HYPERTENSION
     Dosage: 40MG - DAILY - ORAL
     Route: 048
     Dates: start: 20101027, end: 20101122
  3. HYDROCHLOROTHIAZIDE [Suspect]
     Dosage: 25MG - ORAL
     Route: 048
     Dates: start: 20101027
  4. SIMVASTATIN [Suspect]
     Indication: HYPERCHOLESTEROLAEMIA
     Dosage: 20MG - DAILY - ORAL
     Route: 048
     Dates: start: 20101027
  5. SIMVASTATIN [Suspect]
     Indication: HYPERTRIGLYCERIDAEMIA
     Dosage: 20MG - DAILY - ORAL
     Route: 048
     Dates: start: 20101027
  6. ASPIRIN [Suspect]
     Dosage: 100MG - BID - ORAL
     Route: 048
     Dates: start: 20101027
  7. CALCIUM CARBONATE/ COLECALCIFEROL [Suspect]
  8. GLYBURIDE AND METFORMIN HYDROCHLORIDE [Concomitant]
  9. TRAZODONE [Concomitant]

REACTIONS (3)
  - BLOOD PRESSURE INCREASED [None]
  - HYPERAEMIA [None]
  - HYPERSENSITIVITY [None]
